FAERS Safety Report 5219578-3 (Version None)
Quarter: 2007Q1

REPORT INFORMATION
  Report Type: 
  Country: None (occurrence: None)
  Receive Date: 20070124
  Receipt Date: 20070124
  Transmission Date: 20070707
  Serious: Yes (Hospitalization)
  Sender: FDA-Public Use
  Company Number: None

PATIENT
  Age: 15 Year
  Sex: Female
  Weight: 48.5349 kg

DRUGS (1)
  1. AMBIEN [Suspect]
     Indication: INSOMNIA
     Dosage: 1 10MG TABLET EVENINGS PO
     Route: 048
     Dates: start: 20070118, end: 20070121

REACTIONS (7)
  - ABASIA [None]
  - ABNORMAL BEHAVIOUR [None]
  - DIZZINESS [None]
  - DYSSTASIA [None]
  - HALLUCINATION [None]
  - HEART RATE INCREASED [None]
  - SOMNOLENCE [None]
